FAERS Safety Report 23837223 (Version 1)
Quarter: 2024Q2

REPORT INFORMATION
  Report Type: Spontaneous
  Country: ES (occurrence: ES)
  Receive Date: 20240509
  Receipt Date: 20240509
  Transmission Date: 20240715
  Serious: Yes (Other)
  Sender: FDA-Public Use
  Company Number: ES-SUN PHARMACEUTICAL INDUSTRIES LTD-2024R1-445480

PATIENT
  Age: 64 Year
  Sex: Male

DRUGS (1)
  1. PREDNISONE [Suspect]
     Active Substance: PREDNISONE
     Indication: Idiopathic orbital inflammation
     Dosage: 1 MILLIGRAM/KILOGRAM (SLOW TAPER OVER 8 WEEKS)
     Route: 048

REACTIONS (1)
  - Periorbital fat atrophy [Unknown]
